FAERS Safety Report 7001363-3 (Version None)
Quarter: 2010Q3

REPORT INFORMATION
  Report Type: 
  Country: None (occurrence: None)
  Receive Date: 20100920
  Receipt Date: 20100712
  Transmission Date: 20110219
  Serious: No
  Sender: FDA-Public Use
  Company Number: US-ASTRAZENECA-2010SE13559

PATIENT
  Sex: Female

DRUGS (15)
  1. SEROQUEL XR [Suspect]
     Route: 048
  2. LEVOTHYROXINE [Concomitant]
     Route: 048
     Dates: start: 20090709
  3. HYDROCHLOROTHIAZIDE [Concomitant]
     Route: 048
     Dates: start: 20090709
  4. TRIAMCINOLONE ACETONIDE [Concomitant]
     Indication: RASH
     Dosage: BID
  5. KENALOG [Concomitant]
     Dates: start: 20100315
  6. DICLOFENAC SODIUM [Concomitant]
     Route: 048
     Dates: start: 20100324
  7. RESTORIL [Concomitant]
     Route: 048
     Dates: start: 20100405
  8. EXFORGE [Concomitant]
     Route: 048
     Dates: start: 20100422
  9. LIDODERM [Concomitant]
     Dates: start: 20100422
  10. NORCO [Concomitant]
     Dosage: 5-325 MG, 1-2 QHS
     Route: 048
     Dates: start: 20100429
  11. PROTONIX [Concomitant]
     Route: 048
     Dates: start: 20100622
  12. VITAMIN D [Concomitant]
     Route: 048
     Dates: start: 20100628
  13. CALCIUM [Concomitant]
     Dates: start: 20100628
  14. CYMBALTA [Concomitant]
     Route: 048
     Dates: start: 20100628
  15. NEXIUM [Concomitant]
     Route: 048
     Dates: start: 20100628

REACTIONS (3)
  - DRUG HYPERSENSITIVITY [None]
  - INTERCEPTED DRUG DISPENSING ERROR [None]
  - LOSS OF CONSCIOUSNESS [None]
